FAERS Safety Report 10508642 (Version 2)
Quarter: 2015Q1

REPORT INFORMATION
  Report Type: Spontaneous
  Country: NL (occurrence: NL)
  Receive Date: 20141009
  Receipt Date: 20150206
  Transmission Date: 20150720
  Serious: Yes (Other)
  Sender: FDA-Public Use
  Company Number: NL-ASTRAZENECA-2014SE74819

PATIENT
  Sex: Male

DRUGS (2)
  1. ZOLADEX [Suspect]
     Active Substance: GOSERELIN ACETATE
     Indication: PROSTATE CANCER
     Route: 058
     Dates: start: 20130803
  2. ZYTIGA [Concomitant]
     Active Substance: ABIRATERONE ACETATE

REACTIONS (4)
  - Arthralgia [Unknown]
  - Metastatic pain [Unknown]
  - Metastasis [Unknown]
  - Malignant neoplasm progression [Unknown]
